FAERS Safety Report 5764320-0 (Version None)
Quarter: 2008Q2

REPORT INFORMATION
  Report Type: 
  Country: None (occurrence: None)
  Receive Date: 20080610
  Receipt Date: 20071206
  Transmission Date: 20081010
  Serious: No
  Sender: FDA-Public Use
  Company Number: US-BOEHRINGER INGELHEIM GMBH, GERMANY-2007-BP-07286BP

PATIENT
  Sex: Female
  Weight: 163 kg

DRUGS (10)
  1. MIRAPEX [Suspect]
     Indication: PARKINSON'S DISEASE
     Dates: start: 20010301, end: 20021201
  2. CO Q10 [Concomitant]
     Indication: PARKINSON'S DISEASE
     Dates: start: 20020101
  3. PROTONIX [Concomitant]
  4. PROZAC [Concomitant]
     Indication: DEPRESSION
     Dates: start: 20021001
  5. LIPITOR [Concomitant]
     Dates: start: 20021124
  6. KLONOPIN [Concomitant]
     Indication: ANXIETY
  7. VIOXX [Concomitant]
  8. LIPOIC ACID [Concomitant]
  9. PROEPA [Concomitant]
  10. CORTISONE INJECTION [Concomitant]

REACTIONS (7)
  - ANXIETY [None]
  - DEPRESSION [None]
  - EMOTIONAL DISTRESS [None]
  - HYPERPHAGIA [None]
  - PAIN [None]
  - PATHOLOGICAL GAMBLING [None]
  - SUICIDAL IDEATION [None]
